FAERS Safety Report 17688607 (Version 1)
Quarter: 2020Q2

REPORT INFORMATION
  Report Type: Spontaneous
  Country: FR (occurrence: FR)
  Receive Date: 20200421
  Receipt Date: 20200421
  Transmission Date: 20200714
  Serious: Yes (Other)
  Sender: FDA-Public Use
  Company Number: FR-MYLANLABS-2020M1039668

PATIENT
  Age: 81 Year
  Sex: Female

DRUGS (11)
  1. DULOXETINE MYLAN [Suspect]
     Active Substance: DULOXETINE
     Dosage: 1-0-0
     Route: 048
     Dates: start: 20191224, end: 20200102
  2. DULOXETINE MYLAN [Suspect]
     Active Substance: DULOXETINE
     Indication: DEPRESSION
     Dosage: 1-0-0
     Route: 048
     Dates: start: 20191029, end: 20191202
  3. KARDEGIC [Concomitant]
     Active Substance: ASPIRIN DL-LYSINE
     Indication: HYPERTENSION
     Dosage: 1-0-0
     Route: 048
  4. RAMIPRIL. [Concomitant]
     Active Substance: RAMIPRIL
     Indication: HYPERTENSION
     Dosage: 1-0-0
     Route: 048
  5. AMIODARONE [Suspect]
     Active Substance: AMIODARONE
     Indication: ATRIAL FIBRILLATION
     Dosage: 1-0-0 5 JOURS/7
     Route: 048
  6. PANTOPRAZOLE [Suspect]
     Active Substance: PANTOPRAZOLE
     Indication: GASTRIC ULCER
     Dosage: 0-0-1
     Route: 048
  7. OLANZAPINE. [Concomitant]
     Active Substance: OLANZAPINE
     Indication: PSYCHOTIC DISORDER
     Dosage: 0-0-1/2
     Route: 048
  8. ALPRAZOLAM. [Concomitant]
     Active Substance: ALPRAZOLAM
     Indication: ANXIETY
     Dosage: 0-0-1
     Route: 048
  9. AMLODIPINE [Concomitant]
     Active Substance: AMLODIPINE BESYLATE
     Indication: HYPERTENSION
     Dosage: 0-0-1
     Route: 048
  10. DULOXETINE MYLAN [Suspect]
     Active Substance: DULOXETINE
     Dosage: 1-0-0
     Route: 048
     Dates: start: 20191202, end: 20191224
  11. ATORVASTATINE                      /01326101/ [Concomitant]
     Active Substance: ATORVASTATIN
     Indication: DYSLIPIDAEMIA
     Dosage: 0-0-1
     Route: 048

REACTIONS (1)
  - Hepatocellular injury [Recovered/Resolved]

NARRATIVE: CASE EVENT DATE: 20200102
